FAERS Safety Report 6999324-3 (Version None)
Quarter: 2010Q3

REPORT INFORMATION
  Report Type: 
  Country: None (occurrence: None)
  Receive Date: 20100920
  Receipt Date: 20090903
  Transmission Date: 20110219
  Serious: No
  Sender: FDA-Public Use
  Company Number: US-ASTRAZENECA-2009UW03719

PATIENT
  Age: 17081 Day
  Sex: Female
  Weight: 72.6 kg

DRUGS (3)
  1. SEROQUEL [Suspect]
     Indication: DEPRESSION
     Route: 048
     Dates: start: 20060101
  2. ZYPREXA [Concomitant]
  3. ABILIFY [Concomitant]

REACTIONS (2)
  - BLINDNESS [None]
  - TYPE 2 DIABETES MELLITUS [None]
